FAERS Safety Report 14539605 (Version 2)
Quarter: 2018Q2

REPORT INFORMATION
  Report Type: Report from Study
  Country: CA (occurrence: CA)
  Receive Date: 20180216
  Receipt Date: 20180525
  Transmission Date: 20180711
  Serious: Yes (Life-Threatening, Hospitalization, Other)
  Sender: FDA-Public Use
  Company Number: CA-AMGEN-CANSL2017100876

PATIENT
  Age: 78 Year
  Sex: Female
  Weight: 49.89 kg

DRUGS (10)
  1. VITAMIN D [Concomitant]
     Active Substance: CHOLECALCIFEROL
     Dosage: 1000 IU, QD
  2. ZOPLICONE [Concomitant]
     Active Substance: ZOPICLONE
     Dosage: UNK
  3. CALCIUM CARBONATE. [Concomitant]
     Active Substance: CALCIUM CARBONATE
     Dosage: 500 MG, BID
  4. SERTRALINE [Concomitant]
     Active Substance: SERTRALINE HYDROCHLORIDE
     Dosage: 50 MG, QD
  5. PROLIA [Suspect]
     Active Substance: DENOSUMAB
     Indication: OSTEOPOROSIS POSTMENOPAUSAL
     Dosage: 60 MG, Q6MO
     Route: 058
     Dates: start: 20151210, end: 201706
  6. THYROXINE [Concomitant]
     Active Substance: LEVOTHYROXINE
     Dosage: 1 MG, QD
  7. ELTROXIN [Concomitant]
     Active Substance: LEVOTHYROXINE
     Dosage: UNK
  8. AMOXICLAV [Concomitant]
     Active Substance: AMOXICILLIN\CLAVULANIC ACID
     Dosage: 875 MG, BID
  9. BIO K PLUS [Concomitant]
     Dosage: UNK UNK, ONE TIME DOSE
  10. VITAMIN B12 [Concomitant]
     Active Substance: CYANOCOBALAMIN
     Dosage: 3 ML, QWK
     Route: 058

REACTIONS (8)
  - Bone graft [Recovering/Resolving]
  - Osteonecrosis of jaw [Recovered/Resolved]
  - Artificial crown procedure [Recovering/Resolving]
  - Osteomyelitis [Recovered/Resolved]
  - Weight decreased [Unknown]
  - Implant site pain [Recovering/Resolving]
  - Fatigue [Unknown]
  - Device related infection [Recovered/Resolved]

NARRATIVE: CASE EVENT DATE: 201612
